FAERS Safety Report 13461863 (Version 3)
Quarter: 2017Q4

REPORT INFORMATION
  Report Type: Report from Study
  Country: CA (occurrence: CA)
  Receive Date: 20170420
  Receipt Date: 20171229
  Transmission Date: 20180320
  Serious: Yes (Hospitalization)
  Sender: FDA-Public Use
  Company Number: CA-PFIZER INC-2017168568

PATIENT
  Age: 82 Year
  Sex: Male

DRUGS (16)
  1. ENTYVIO [Suspect]
     Active Substance: VEDOLIZUMAB
     Dosage: 300 MG, Q4WEEKS
     Route: 042
     Dates: start: 20170407
  2. ASA [Concomitant]
     Active Substance: ASPIRIN
     Dosage: 80 MG, UNK
     Route: 048
  3. PANTOLOC [Suspect]
     Active Substance: PANTOPRAZOLE SODIUM
     Dosage: UNK
     Route: 065
     Dates: start: 20130701
  4. AMLODIPINE [Concomitant]
     Active Substance: AMLODIPINE BESYLATE
     Dosage: 5 MG, QD
  5. POTASSIUM [Concomitant]
     Active Substance: POTASSIUM
     Dosage: UNK, QD
  6. ALFUZOSIN [Concomitant]
     Active Substance: ALFUZOSIN
     Indication: HYPERTENSION
     Dosage: UNK
  7. PREDNISONE. [Concomitant]
     Active Substance: PREDNISONE
     Dosage: UNK
     Dates: start: 201301
  8. ENTYVIO [Suspect]
     Active Substance: VEDOLIZUMAB
     Dosage: 300 MG, Q4WEEKS
     Route: 042
  9. VITAMIN B12 [Concomitant]
     Active Substance: CYANOCOBALAMIN
     Dosage: UNK
  10. METHOTREXATE. [Concomitant]
     Active Substance: METHOTREXATE
     Dosage: UNK
     Dates: start: 20150601
  11. ENTYVIO [Suspect]
     Active Substance: VEDOLIZUMAB
     Dosage: 300 MG, Q4WEEKS
     Route: 042
  12. VITAMIN D [Concomitant]
     Active Substance: CHOLECALCIFEROL
     Dosage: UNK
  13. ENTYVIO [Suspect]
     Active Substance: VEDOLIZUMAB
     Dosage: 300 MG, Q4WEEKS
     Route: 042
     Dates: end: 20171215
  14. CALCIUM [Concomitant]
     Active Substance: CALCIUM
     Dosage: UNK
  15. ENTYVIO [Suspect]
     Active Substance: VEDOLIZUMAB
     Indication: CROHN^S DISEASE
     Dosage: 300 MG, UNK
     Route: 042
     Dates: start: 20160617, end: 20170310
  16. DUTASTERIDE. [Concomitant]
     Active Substance: DUTASTERIDE
     Indication: HYPERTENSION
     Dosage: UNK

REACTIONS (2)
  - Abscess [Unknown]
  - Infection [Unknown]

NARRATIVE: CASE EVENT DATE: 201702
